FAERS Safety Report 7657050-1 (Version None)
Quarter: 2011Q3

REPORT INFORMATION
  Report Type: 
  Country: None (occurrence: None)
  Receive Date: 20110804
  Receipt Date: 20110729
  Transmission Date: 20111222
  Serious: Yes (Hospitalization)
  Sender: FDA-Public Use
  Company Number: FR-TEVA-294152ISR

PATIENT
  Sex: Male
  Weight: 60 kg

DRUGS (25)
  1. FLUOROURACIL [Suspect]
     Route: 040
     Dates: start: 20091109
  2. FLUOROURACIL [Suspect]
     Route: 040
     Dates: start: 20091228, end: 20100102
  3. FLUOROURACIL [Suspect]
     Route: 040
     Dates: start: 20100111, end: 20100116
  4. IRINOTECAN HCL [Suspect]
     Route: 042
     Dates: start: 20091109
  5. FLUOROURACIL [Suspect]
     Indication: GASTRIC CANCER
     Route: 040
     Dates: start: 20091012
  6. FLUOROURACIL [Suspect]
     Route: 040
     Dates: start: 20091026
  7. LEUCOVORIN CALCIUM [Suspect]
     Dates: start: 20091026
  8. PIPERACILLIN SODIUM, TAZOBACTAM SODIUM [Concomitant]
     Dates: start: 20100310, end: 20100319
  9. VIREAD [Concomitant]
     Dates: start: 20090923
  10. IRINOTECAN HCL [Suspect]
     Indication: GASTRIC CANCER
     Route: 042
     Dates: start: 20091012
  11. IRINOTECAN HCL [Suspect]
     Route: 042
     Dates: start: 20091123
  12. LEUCOVORIN CALCIUM [Suspect]
     Indication: GASTRIC CANCER
     Dates: start: 20091012
  13. LEUCOVORIN CALCIUM [Suspect]
     Dates: start: 20091109
  14. ACETAMINOPHEN [Concomitant]
     Dates: start: 20100220, end: 20100329
  15. FLUOROURACIL [Suspect]
     Route: 040
     Dates: start: 20091026
  16. FLUOROURACIL [Suspect]
     Route: 040
     Dates: start: 20091109
  17. FLUOROURACIL [Suspect]
     Route: 040
     Dates: start: 20091214, end: 20091219
  18. FLUOROURACIL [Suspect]
     Route: 040
     Dates: start: 20091221, end: 20091226
  19. LEUCOVORIN CALCIUM [Suspect]
     Dates: start: 20091123
  20. FLUOROURACIL [Suspect]
     Route: 040
     Dates: start: 20091123
  21. FLUOROURACIL [Suspect]
     Route: 040
     Dates: start: 20091012
  22. LOVENOX [Concomitant]
     Dates: start: 20100220, end: 20100329
  23. IRINOTECAN HCL [Suspect]
     Route: 042
     Dates: start: 20091026
  24. FLUOROURACIL [Suspect]
     Route: 040
     Dates: start: 20100104, end: 20100109
  25. FLUOROURACIL [Suspect]
     Route: 040
     Dates: start: 20091123

REACTIONS (1)
  - ANASTOMOTIC ULCER [None]
